FAERS Safety Report 9351417 (Version 1)
Quarter: 2013Q2

REPORT INFORMATION
  Report Type: Spontaneous
  Country: US (occurrence: US)
  Receive Date: 20130617
  Receipt Date: 20130617
  Transmission Date: 20140414
  Serious: Yes (Hospitalization)
  Sender: FDA-Public Use
  Company Number: US-UPSHER-SMITH LABORATORIES, INC.-13001829

PATIENT
  Age: 82 Year
  Sex: Male

DRUGS (6)
  1. KLOR-CON TABLETS [Suspect]
     Indication: BLOOD POTASSIUM DECREASED
     Dosage: 10 MEQ, BID
     Dates: start: 2012, end: 201305
  2. NORVASC                            /00972401/ [Concomitant]
     Dosage: UNK
  3. BABY ASPIRIN [Concomitant]
     Dosage: UNK
  4. PRILOSEC                           /00661201/ [Concomitant]
     Dosage: UNK
  5. VITAMINS NOS [Concomitant]
     Dosage: UNK
  6. B COMPLEX                          /00212701/ [Concomitant]
     Dosage: UNK

REACTIONS (2)
  - Large intestinal haemorrhage [Recovered/Resolved]
  - Medication residue present [Recovered/Resolved]
